FAERS Safety Report 8757830 (Version 1)
Quarter: 2012Q4

REPORT INFORMATION
  Report Type: 
  Country: FR (occurrence: FR)
  Receive Date: 20120828
  Receipt Date: 20120828
  Transmission Date: 20130627
  Serious: Yes (Other)
  Sender: FDA-Public Use
  Company Number: FR-ROCHE-1089908

PATIENT
  Age: 63 Year
  Sex: Female
  Weight: 50 kg

DRUGS (3)
  1. AVASTIN [Suspect]
     Indication: OVARIAN CANCER
     Route: 042
     Dates: start: 20100222, end: 20110127
  2. TAXOL [Concomitant]
     Indication: OVARIAN CANCER
     Route: 042
     Dates: start: 20100215, end: 20100624
  3. CARBOPLATIN [Concomitant]
     Indication: OVARIAN CANCER
     Route: 042
     Dates: start: 20100215, end: 20100624

REACTIONS (1)
  - Lymphangiosis carcinomatosa [Not Recovered/Not Resolved]
